FAERS Safety Report 19970329 (Version 1)
Quarter: 2021Q4

REPORT INFORMATION
  Report Type: Spontaneous
  Country: IT (occurrence: IT)
  Receive Date: 20211019
  Receipt Date: 20211019
  Transmission Date: 20220304
  Serious: Yes (Hospitalization, Other)
  Sender: FDA-Public Use
  Company Number: None

PATIENT
  Age: 67 Year
  Sex: Male

DRUGS (2)
  1. CLOPIDOGREL BISULFATE [Interacting]
     Active Substance: CLOPIDOGREL BISULFATE
     Dosage: 1 DF
     Route: 048
     Dates: start: 20200101, end: 20210922
  2. APIXABAN [Interacting]
     Active Substance: APIXABAN
     Dosage: 1 DF, QD
     Route: 048
     Dates: start: 20200101, end: 20210922

REACTIONS (3)
  - Drug interaction [Recovering/Resolving]
  - Haemorrhage [Recovering/Resolving]
  - Anaemia [Recovering/Resolving]

NARRATIVE: CASE EVENT DATE: 20210921
